FAERS Safety Report 4674165-0 (Version None)
Quarter: 2005Q2

REPORT INFORMATION
  Report Type: 
  Country: None (occurrence: None)
  Receive Date: 20050524
  Receipt Date: 20050524
  Transmission Date: 20051028
  Serious: No
  Sender: FDA-Public Use
  Company Number: None

PATIENT
  Sex: Female
  Weight: 97.2 kg

DRUGS (3)
  1. DOXORUBICIN [Suspect]
     Indication: BREAST CANCER
     Dosage: 600 MG/M2
     Dates: start: 20050509
  2. CYCLOPHOSPHAMIDE [Suspect]
     Dosage: 600 MG/M2 EVERY 2 WEEKS X 4 CYCLES
  3. PACLITAXEL [Suspect]
     Dosage: 175 MG/M2 EVERY 2 WEEKS X 4 CYCLES

REACTIONS (14)
  - CLOSTRIDIUM COLITIS [None]
  - DIARRHOEA [None]
  - DYSPNOEA [None]
  - ECHOCARDIOGRAM ABNORMAL [None]
  - HYPOTENSION [None]
  - MASS [None]
  - NEUTROPENIA [None]
  - PERICARDIAL EFFUSION [None]
  - PERICARDITIS CONSTRICTIVE [None]
  - PLEURAL EFFUSION [None]
  - RENAL FAILURE ACUTE [None]
  - SHOCK [None]
  - SINUS TACHYCARDIA [None]
  - URINE OUTPUT DECREASED [None]
